FAERS Safety Report 22244554 (Version 1)
Quarter: 2023Q2

REPORT INFORMATION
  Report Type: Spontaneous
  Country: US (occurrence: None)
  Receive Date: 20230422
  Receipt Date: 20230422
  Transmission Date: 20230721
  Serious: No
  Sender: FDA-Public Use
  Company Number: None

PATIENT
  Age: 55 Year
  Sex: Male
  Weight: 77.4 kg

DRUGS (8)
  1. HYDRALAZINE [Suspect]
     Active Substance: HYDRALAZINE HYDROCHLORIDE
     Indication: Blood pressure measurement
     Dosage: OTHER QUANTITY : 1 TABLET(S);?FREQUENCY : TWICE A DAY;?
     Route: 048
     Dates: start: 20230420, end: 20230422
  2. PREDNISONE [Concomitant]
     Active Substance: PREDNISONE
  3. microphenalate [Concomitant]
  4. IRON [Concomitant]
     Active Substance: IRON
  5. famotibine [Concomitant]
  6. TACROLIMUS [Concomitant]
     Active Substance: TACROLIMUS
  7. carbedilol [Concomitant]
  8. ONE-A-DAY NOS [Concomitant]
     Active Substance: MINERALS\VITAMINS

REACTIONS (2)
  - Peripheral swelling [None]
  - Joint swelling [None]

NARRATIVE: CASE EVENT DATE: 20230422
